FAERS Safety Report 6508709-0 (Version None)
Quarter: 2009Q4

REPORT INFORMATION
  Report Type: 
  Country: None (occurrence: None)
  Receive Date: 20091221
  Receipt Date: 20081230
  Transmission Date: 20100525
  Serious: Yes (Other)
  Sender: FDA-Public Use
  Company Number: US-ASTRAZENECA-2008UW28961

PATIENT
  Age: 63 Year
  Sex: Female
  Weight: 83.9 kg

DRUGS (7)
  1. CRESTOR [Suspect]
     Indication: BLOOD CHOLESTEROL
     Route: 048
     Dates: start: 20070601
  2. INDERAL [Concomitant]
  3. TOPAMAX [Concomitant]
     Dosage: 25 MG BID OR DAILY
  4. PRILOSEC [Concomitant]
     Route: 048
  5. ASPIRIN [Concomitant]
  6. FISH OIL [Concomitant]
     Indication: SUPPLEMENTATION THERAPY
  7. CALCIUM [Concomitant]
     Indication: SUPPLEMENTATION THERAPY

REACTIONS (1)
  - MYALGIA [None]
